FAERS Safety Report 4450398-3 (Version None)
Quarter: 2004Q3

REPORT INFORMATION
  Report Type: 
  Country: None (occurrence: None)
  Receive Date: 20040915
  Receipt Date: 20040910
  Transmission Date: 20050211
  Serious: Yes (Hospitalization)
  Sender: FDA-Public Use
  Company Number: FR-MERCK-0409FRA00040

PATIENT
  Age: 76 Year
  Sex: Female

DRUGS (2)
  1. BROMAZEPAM [Concomitant]
     Route: 048
  2. VIOXX [Suspect]
     Indication: LOCALISED OSTEOARTHRITIS
     Route: 048
     Dates: start: 20021101, end: 20040524

REACTIONS (1)
  - PERFORATED ULCER [None]
